FAERS Safety Report 9834774 (Version 2)
Quarter: 2014Q1

REPORT INFORMATION
  Report Type: Spontaneous
  Country: US (occurrence: US)
  Receive Date: 20140122
  Receipt Date: 20140122
  Transmission Date: 20141002
  Serious: Yes (Other)
  Sender: FDA-Public Use
  Company Number: US-BAXTER-2013BAX016912

PATIENT
  Sex: 0

DRUGS (3)
  1. EXTRANEAL [Suspect]
     Indication: PERITONEAL DIALYSIS
     Route: 033
  2. EXTRANEAL [Suspect]
     Route: 033
  3. VANCOMYCIN [Suspect]
     Indication: PERITONITIS
     Route: 065

REACTIONS (2)
  - Peritonitis [Unknown]
  - Rash [Unknown]
